FAERS Safety Report 5444358-3 (Version None)
Quarter: 2007Q3

REPORT INFORMATION
  Report Type: 
  Country: None (occurrence: None)
  Receive Date: 20070831
  Receipt Date: 20070821
  Transmission Date: 20080115
  Serious: Yes (Life-Threatening, Other)
  Sender: FDA-Public Use
  Company Number: OMPQ-GE-0708S-1142

PATIENT
  Age: 78 Year
  Sex: Male
  Weight: 71 kg

DRUGS (1)
  1. ACCUPAQUE                    (IOHEXOL) [Suspect]
     Indication: CORONARY ARTERY DISEASE
     Dosage: 195 ML, SINGLE DOSE, CORONARY
     Dates: start: 20070801, end: 20070801

REACTIONS (3)
  - AMAUROSIS [None]
  - DELIRIUM [None]
  - RHABDOMYOLYSIS [None]
